FAERS Safety Report 5553714-4 (Version None)
Quarter: 2007Q4

REPORT INFORMATION
  Report Type: 
  Country: None (occurrence: None)
  Receive Date: 20071211
  Receipt Date: 20071129
  Transmission Date: 20080405
  Serious: Yes (Other)
  Sender: FDA-Public Use
  Company Number: CLOF-10737

PATIENT
  Age: 23431 Day
  Sex: Male
  Weight: 100 kg

DRUGS (24)
  1. CLOFARABINE. MFR: GENZYME [Suspect]
     Indication: MYELOID LEUKAEMIA
     Dates: start: 20071029, end: 20071103
  2. CLOFARABINE. MFR: GENZYME [Suspect]
     Indication: MYELOID LEUKAEMIA
     Dosage: 44 MG QD X 5 IV
     Route: 042
     Dates: start: 20071121, end: 20071125
  3. TYLENOL [Concomitant]
  4. ATIVAN [Concomitant]
  5. LASIX [Concomitant]
  6. PANTOPRAZOLE SODIUM [Concomitant]
  7. ATENOLOL [Concomitant]
  8. AMLODIPINE [Concomitant]
  9. VALSARTAN [Concomitant]
  10. SIMVASTATIN [Concomitant]
  11. INSULIN ASPART [Concomitant]
  12. ACETAMINOPHEN [Concomitant]
  13. RAMIPRIL [Concomitant]
  14. VANCOMYCIN [Concomitant]
  15. CEFEPIME [Concomitant]
  16. AMIKACIN [Concomitant]
  17. INSULIN NPH INJECTION [Concomitant]
  18. NYSTATIN [Concomitant]
  19. HYDROCODONE BITARTRATE AND ACETAMINOPHEN [Concomitant]
  20. AMPHOTERICIN B [Concomitant]
  21. GUAIFENESIN [Concomitant]
  22. CEFAZOLIN SODIUM IN DEXTROSE 5% [Concomitant]
  23. SODIUM CHLORIDE (OECEAN) [Concomitant]
  24. POTASSIUM CHLORIDE [Concomitant]

REACTIONS (24)
  - ANXIETY [None]
  - ATELECTASIS [None]
  - BLOOD CHLORIDE INCREASED [None]
  - BRONCHOALVEOLAR LAVAGE ABNORMAL [None]
  - CARDIAC FAILURE [None]
  - COLD SWEAT [None]
  - CONFUSIONAL STATE [None]
  - FEELING COLD [None]
  - FLUID OVERLOAD [None]
  - HAEMATOCRIT DECREASED [None]
  - HAEMOGLOBIN DECREASED [None]
  - HYPERHIDROSIS [None]
  - INFECTION [None]
  - MITRAL VALVE INCOMPETENCE [None]
  - PALLOR [None]
  - PITTING OEDEMA [None]
  - PLATELET COUNT DECREASED [None]
  - PLEURAL EFFUSION [None]
  - PNEUMONIA [None]
  - RENAL IMPAIRMENT [None]
  - RESTLESSNESS [None]
  - TACHYCARDIA [None]
  - TRICUSPID VALVE INCOMPETENCE [None]
  - TUMOUR LYSIS SYNDROME [None]
